FAERS Safety Report 22077249 (Version 1)
Quarter: 2023Q1

REPORT INFORMATION
  Report Type: Spontaneous
  Country: US (occurrence: US)
  Receive Date: 20230309
  Receipt Date: 20230309
  Transmission Date: 20230417
  Serious: Yes (Other)
  Sender: FDA-Public Use
  Company Number: US-MLMSERVICE-20230227-4121440-2

PATIENT
  Age: 14 Year
  Sex: Female

DRUGS (8)
  1. DROSPIRENONE\ETHINYL ESTRADIOL [Suspect]
     Active Substance: DROSPIRENONE\ETHINYL ESTRADIOL
     Indication: Amenorrhoea
     Dosage: UNK
     Route: 048
  2. DROSPIRENONE\ETHINYL ESTRADIOL [Suspect]
     Active Substance: DROSPIRENONE\ETHINYL ESTRADIOL
     Indication: Hirsutism
  3. DROSPIRENONE\ETHINYL ESTRADIOL [Suspect]
     Active Substance: DROSPIRENONE\ETHINYL ESTRADIOL
     Indication: Oral contraception
  4. CIPROFIBRATE [Concomitant]
     Active Substance: CIPROFIBRATE
     Indication: Product used for unknown indication
     Dosage: 100 MILLIGRAM, ONCE A DAY(100 TO 200 MG/DAY)
     Route: 065
  5. CIPROFIBRATE [Concomitant]
     Active Substance: CIPROFIBRATE
     Dosage: 200 MILLIGRAM, ONCE A DAY(100 TO 200 MG/DAY)
     Route: 065
  6. INSULIN NOS [Concomitant]
     Active Substance: INSULIN NOS
     Indication: Diabetes mellitus
     Dosage: 0.6 U/KG/DAY (MULTIPLE DAILY INJECTIONS) AND REQUIRED PROGRESSIVELY HIGHER DOSES
     Route: 065
  7. INSULIN NOS [Concomitant]
     Active Substance: INSULIN NOS
     Dosage: 0.6 U/KG/DAY (MULTIPLE DAILY INJECTIONS) AND REQUIRED PROGRESSIVELY HIGHER DOSES
     Route: 065
  8. METFORMIN [Concomitant]
     Active Substance: METFORMIN HYDROCHLORIDE
     Indication: Insulin resistance
     Dosage: 500 MILLIGRAM, TWO TIMES A DAY
     Route: 065

REACTIONS (1)
  - Hypertriglyceridaemia [Recovered/Resolved]
